FAERS Safety Report 6731124-1 (Version None)
Quarter: 2010Q2

REPORT INFORMATION
  Report Type: 
  Country: None (occurrence: None)
  Receive Date: 20100518
  Receipt Date: 20100422
  Transmission Date: 20101027
  Serious: No
  Sender: FDA-Public Use
  Company Number: A0854626A

PATIENT
  Age: 75 Year
  Sex: Female

DRUGS (9)
  1. COREG CR [Suspect]
     Indication: HYPERTENSION
     Dosage: 80MG PER DAY
     Route: 048
     Dates: start: 20100318
  2. NEXIUM [Concomitant]
  3. SYNTHROID [Concomitant]
  4. DIOVAN HCT [Concomitant]
  5. LIPITOR [Concomitant]
  6. METFORMIN HYDROCHLORIDE [Concomitant]
  7. FOSAMAX [Concomitant]
  8. ASPIRIN [Concomitant]
  9. VITAMIN D [Concomitant]

REACTIONS (4)
  - BLOOD GLUCOSE INCREASED [None]
  - HUNGER [None]
  - NAUSEA [None]
  - WEIGHT INCREASED [None]
